FAERS Safety Report 9775452 (Version 1)
Quarter: 2013Q4

REPORT INFORMATION
  Report Type: Report from Study
  Country: US (occurrence: US)
  Receive Date: 20131220
  Receipt Date: 20131220
  Transmission Date: 20140711
  Serious: Yes (Other)
  Sender: FDA-Public Use
  Company Number: US-BAYER-2013-153540

PATIENT
  Age: 61 Year
  Sex: Male

DRUGS (3)
  1. BETASERON [Suspect]
     Indication: RELAPSING-REMITTING MULTIPLE SCLEROSIS
     Dosage: 8 MIU, QOD
     Route: 058
     Dates: start: 20131001
  2. GABAPENTIN [Concomitant]
  3. TYLENOL [PARACETAMOL] [Concomitant]

REACTIONS (3)
  - Injection site thrombosis [Recovering/Resolving]
  - Venous injury [Recovering/Resolving]
  - Headache [Not Recovered/Not Resolved]
